FAERS Safety Report 22262554 (Version 1)
Quarter: 2023Q2

REPORT INFORMATION
  Report Type: Spontaneous
  Country: GB (occurrence: GB)
  Receive Date: 20230428
  Receipt Date: 20230428
  Transmission Date: 20230721
  Serious: Yes (Life-Threatening, Hospitalization)
  Sender: FDA-Public Use
  Company Number: None

PATIENT
  Age: 69 Year
  Sex: Female

DRUGS (16)
  1. ALENDRONATE SODIUM [Suspect]
     Active Substance: ALENDRONATE SODIUM
     Indication: Fracture
     Dosage: 70 MILLIGRAM, ONE TO BE TAKEN ON THE SAME DAY EACH WEEK
     Dates: end: 20230424
  2. CALCIUM CARBONATE\CHOLECALCIFEROL [Concomitant]
     Active Substance: CALCIUM CARBONATE\CHOLECALCIFEROL
     Dosage: TUTTI FRUTTI TWO CHEWABLE TABLETS PER DAY/ 750MG/200UNIT CAPLETS
  3. CHOLECALCIFEROL [Concomitant]
     Active Substance: CHOLECALCIFEROL
     Dosage: UNK
  4. CHOLECALCIFEROL [Concomitant]
     Active Substance: CHOLECALCIFEROL
     Dosage: 20,000-UNIT CAPSULES ONE CAPSULE ONCE A MONTH , (QM)
     Dates: end: 20230424
  5. HYPROMELLOSES [Concomitant]
     Active Substance: HYPROMELLOSES
     Dosage: UNK UNK, TO BE USED WHEN REQUIRED (PRN)
  6. HYPROMELLOSES [Concomitant]
     Active Substance: HYPROMELLOSES
     Dosage: UNK
  7. MORPHINE [Concomitant]
     Active Substance: MORPHINE
     Indication: Pain
     Dosage: 2.5 MILLIGRAM, EVERY FOUR HOURS IF REQUIRED FOR PAIN (MAXIMUM 6 DOSES EACH DAY) ABOUT 5 ML SPOONFUL/
  8. MORPHINE [Concomitant]
     Active Substance: MORPHINE
     Dosage: UNK
  9. OMEPRAZOLE [Concomitant]
     Active Substance: OMEPRAZOLE
     Dosage: ONE TO BE TAKEN TWICE A DAY 56 CAPSULE
     Dates: end: 20230424
  10. OMEPRAZOLE [Concomitant]
     Active Substance: OMEPRAZOLE
     Dosage: UNK
  11. PRAMIPEXOLE [Concomitant]
     Active Substance: PRAMIPEXOLE
     Dosage: ONE TO FOUR TABLETS ONCE DAILY 2-3 HOURS BEFORE BEDTIME
     Dates: start: 20230424
  12. PRAMIPEXOLE [Concomitant]
     Active Substance: PRAMIPEXOLE
     Dosage: UNK
  13. SERTRALINE [Concomitant]
     Active Substance: SERTRALINE HYDROCHLORIDE
     Dosage: TWO TABLETS A DAY
     Dates: end: 20230424
  14. SERTRALINE [Concomitant]
     Active Substance: SERTRALINE HYDROCHLORIDE
     Dosage: UNK
  15. THIAMINE [Concomitant]
     Active Substance: THIAMINE
     Dosage: ONE TO BE TAKEN THREE TIMES A DAY
     Dates: start: 20230424
  16. THIAMINE [Concomitant]
     Active Substance: THIAMINE
     Dosage: UNK

REACTIONS (1)
  - Femoral neck fracture [Recovered/Resolved]
